FAERS Safety Report 7459943-7 (Version None)
Quarter: 2011Q2

REPORT INFORMATION
  Report Type: 
  Country: None (occurrence: None)
  Receive Date: 20110427
  Receipt Date: 20110412
  Transmission Date: 20111010
  Serious: Yes (Other)
  Sender: FDA-Public Use
  Company Number: CIP11001041

PATIENT
  Age: 76 Year
  Sex: Female

DRUGS (1)
  1. ENABLEX [Suspect]
     Indication: URINARY INCONTINENCE
     Dosage: 7.5 MG, ORAL
     Route: 048

REACTIONS (3)
  - DRUG EFFECT DECREASED [None]
  - OSTEOARTHRITIS [None]
  - DISCOMFORT [None]
